FAERS Safety Report 25965702 (Version 1)
Quarter: 2025Q4

REPORT INFORMATION
  Report Type: Spontaneous
  Country: US (occurrence: US)
  Receive Date: 20251027
  Receipt Date: 20251027
  Transmission Date: 20260118
  Serious: No
  Sender: SANOFI AVENTIS
  Company Number: US-SA-2025SA317692

PATIENT
  Age: 61 Year
  Sex: Female
  Weight: 96.82 kg

DRUGS (1)
  1. DUPIXENT [Suspect]
     Active Substance: DUPILUMAB
     Indication: Dermatitis atopic
     Dosage: 300 MG, QOW
     Route: 058
     Dates: start: 202508

REACTIONS (6)
  - Dry skin [Unknown]
  - Increased appetite [Unknown]
  - Nasopharyngitis [Unknown]
  - Productive cough [Unknown]
  - Secretion discharge [Unknown]
  - Rash [Unknown]

NARRATIVE: CASE EVENT DATE: 20250101
